FAERS Safety Report 4422526-7 (Version None)
Quarter: 2004Q3

REPORT INFORMATION
  Report Type: 
  Country: None (occurrence: None)
  Receive Date: 20040806
  Receipt Date: 20040722
  Transmission Date: 20050211
  Serious: Yes (Hospitalization)
  Sender: FDA-Public Use
  Company Number: 04P-163-0267873-00

PATIENT
  Age: 87 Year
  Sex: Female
  Weight: 31.7518 kg

DRUGS (1)
  1. MERIDIA [Suspect]
     Dosage: 10 MG,

REACTIONS (4)
  - DIZZINESS [None]
  - FALL [None]
  - FEMORAL NECK FRACTURE [None]
  - MEDICATION ERROR [None]
